FAERS Safety Report 8301916-6 (Version None)
Quarter: 2012Q2

REPORT INFORMATION
  Report Type: 
  Country: None (occurrence: None)
  Receive Date: 20120418
  Receipt Date: 20120404
  Transmission Date: 20120825
  Serious: Yes (Hospitalization, Other)
  Sender: FDA-Public Use
  Company Number: JPI-P-009953

PATIENT
  Age: 51 Year
  Sex: Female
  Weight: 72.5755 kg

DRUGS (12)
  1. AMLODIPINE BESYLATE [Concomitant]
  2. QUETIAPINE FUMARATE [Concomitant]
  3. VENLAFAXINE HYDROCHLORIDE [Concomitant]
  4. MODAFINIL [Concomitant]
  5. DESVENLAFAXINE [Concomitant]
  6. DEXTROAMPHETAMINE [Concomitant]
  7. PROMETHAZINE [Concomitant]
  8. LETROZOLE [Concomitant]
  9. CLONAZEPAM [Concomitant]
  10. PANTOPRAZOLE [Concomitant]
  11. XYREM [Suspect]
     Indication: CATAPLEXY
     Dosage: 4.5 GM (2.25 GM,2 IN 1 D),ORAL, (4.5 GM FIRST DOSE/3 GM SECOND DOSE),ORAL, 9 AM (4.5 AM,2 IN 1 D),OR
     Route: 048
     Dates: start: 20030920
  12. XYREM [Suspect]
     Indication: SOMNOLENCE
     Dosage: 4.5 GM (2.25 GM,2 IN 1 D),ORAL, (4.5 GM FIRST DOSE/3 GM SECOND DOSE),ORAL, 9 AM (4.5 AM,2 IN 1 D),OR
     Route: 048
     Dates: start: 20030920

REACTIONS (4)
  - UPPER RESPIRATORY TRACT INFECTION [None]
  - SOMNOLENCE [None]
  - BREAST CANCER [None]
  - PNEUMONIA [None]
